FAERS Safety Report 11844184 (Version 1)
Quarter: 2015Q4

REPORT INFORMATION
  Report Type: Spontaneous
  Country: US (occurrence: US)
  Receive Date: 20151217
  Receipt Date: 20151217
  Transmission Date: 20160305
  Serious: Yes (Other)
  Sender: FDA-Public Use
  Company Number: US-BIOGEN-2015BI143394

PATIENT
  Age: 46 Year
  Sex: Female
  Weight: 58.11 kg

DRUGS (1)
  1. TECFIDERA [Suspect]
     Active Substance: DIMETHYL FUMARATE
     Indication: MULTIPLE SCLEROSIS
     Route: 048
     Dates: start: 201304, end: 20151017

REACTIONS (1)
  - Papillary thyroid cancer [Recovered/Resolved with Sequelae]

NARRATIVE: CASE EVENT DATE: 201510
